FAERS Safety Report 6862915-4 (Version None)
Quarter: 2010Q3

REPORT INFORMATION
  Report Type: 
  Country: None (occurrence: None)
  Receive Date: 20100721
  Receipt Date: 20100714
  Transmission Date: 20110219
  Serious: Yes (Other)
  Sender: FDA-Public Use
  Company Number: B0666405A

PATIENT
  Sex: Female

DRUGS (1)
  1. CEFTAZIDIME [Suspect]
     Dosage: 1G PER DAY
     Route: 030
     Dates: start: 20100521, end: 20100521

REACTIONS (1)
  - LARYNGOSPASM [None]
